FAERS Safety Report 9189776 (Version 1)
Quarter: 2013Q1

REPORT INFORMATION
  Report Type: Spontaneous
  Country: BE (occurrence: BE)
  Receive Date: 20130326
  Receipt Date: 20130326
  Transmission Date: 20140127
  Serious: Yes (Other)
  Sender: FDA-Public Use
  Company Number: BE-JNJFOC-20130311462

PATIENT
  Sex: Male

DRUGS (8)
  1. INFLIXIMAB, RECOMBINANT [Suspect]
     Indication: AMYLOIDOSIS
     Route: 042
  2. INFLIXIMAB, RECOMBINANT [Suspect]
     Indication: CROHN^S DISEASE
     Route: 042
  3. AZATHIOPRINE [Suspect]
     Indication: CROHN^S DISEASE
     Route: 065
  4. AZATHIOPRINE [Suspect]
     Indication: AMYLOIDOSIS
     Route: 065
  5. METHOTREXATE [Suspect]
     Indication: CROHN^S DISEASE
     Route: 065
  6. METHOTREXATE [Suspect]
     Indication: AMYLOIDOSIS
     Route: 065
  7. THALIDOMIDE [Suspect]
     Indication: CROHN^S DISEASE
     Route: 065
  8. THALIDOMIDE [Suspect]
     Indication: AMYLOIDOSIS
     Route: 065

REACTIONS (1)
  - Serum amyloid A protein increased [Unknown]
